FAERS Safety Report 8418978-8 (Version None)
Quarter: 2012Q2

REPORT INFORMATION
  Report Type: 
  Country: None (occurrence: None)
  Receive Date: 20120607
  Receipt Date: 20120601
  Transmission Date: 20120825
  Serious: Yes (Other)
  Sender: FDA-Public Use
  Company Number: PHHY2012JP047789

PATIENT
  Sex: Male

DRUGS (2)
  1. ZOMETA [Suspect]
     Indication: METASTASES TO BONE
     Route: 041
  2. DOCETAXEL [Suspect]
     Route: 042

REACTIONS (1)
  - INTERSTITIAL LUNG DISEASE [None]
